FAERS Safety Report 6877243-0 (Version None)
Quarter: 2010Q3

REPORT INFORMATION
  Report Type: 
  Country: None (occurrence: None)
  Receive Date: 20100727
  Receipt Date: 20090805
  Transmission Date: 20110219
  Serious: No
  Sender: FDA-Public Use
  Company Number: US-ABBOTT-09P-163-0590054-00

PATIENT
  Sex: Female
  Weight: 61.744 kg

DRUGS (2)
  1. SYNTHROID [Suspect]
     Indication: HYPOTHYROIDISM
  2. NITROFURANTOIN [Suspect]
     Indication: PRODUCT USED FOR UNKNOWN INDICATION
     Dates: start: 20090701, end: 20090801

REACTIONS (5)
  - DIARRHOEA [None]
  - HEADACHE [None]
  - RASH [None]
  - THINKING ABNORMAL [None]
  - URINARY TRACT INFECTION [None]
